FAERS Safety Report 7376234-3 (Version None)
Quarter: 2011Q1

REPORT INFORMATION
  Report Type: 
  Country: None (occurrence: None)
  Receive Date: 20110325
  Receipt Date: 20101227
  Transmission Date: 20110831
  Serious: Yes (Other)
  Sender: FDA-Public Use
  Company Number: US-BAYER-2011-025336

PATIENT
  Sex: Male
  Weight: 45 kg

DRUGS (1)
  1. ALKA-SELTZER PLUS NIGHT COLD [Suspect]
     Indication: NASOPHARYNGITIS
     Dosage: COUNT BOTTLE 20S
     Route: 048
     Dates: start: 20101224

REACTIONS (3)
  - NASOPHARYNGITIS [None]
  - UNRESPONSIVE TO STIMULI [None]
  - DECREASED APPETITE [None]
